FAERS Safety Report 9227068 (Version 3)
Quarter: 2013Q2

REPORT INFORMATION
  Report Type: Spontaneous
  Country: US (occurrence: None)
  Receive Date: 20130410
  Receipt Date: 20130522
  Transmission Date: 20140414
  Serious: Yes (Other)
  Sender: FDA-Public Use
  Company Number: USW201303-000026

PATIENT
  Age: 66 Year
  Sex: Female

DRUGS (4)
  1. APOKYN [Suspect]
     Indication: PARKINSON^S DISEASE
     Dosage: 0.3 ML, 2-3 TIMES A DAY
     Dates: start: 20130327
  2. TIGAN (TRIMETHOBENZAMIDE) (TRIMETHOBENZAMIDE) [Concomitant]
  3. CARBIDOPA AND LEVODOPA (CARBIDOPA, LEVODOPA) (CARBIDOPA, LEVODOPA) [Concomitant]
  4. NEUPRO PATCH (ROTIGOTINE) (ROTIGOTINE) [Concomitant]

REACTIONS (7)
  - Hypotension [None]
  - Sensation of foreign body [None]
  - Throat tightness [None]
  - Yawning [None]
  - Mood altered [None]
  - Mental disorder [None]
  - Dyskinesia [None]
